FAERS Safety Report 15448127 (Version 2)
Quarter: 2019Q1

REPORT INFORMATION
  Report Type: Spontaneous
  Country: IT (occurrence: IT)
  Receive Date: 20180928
  Receipt Date: 20190208
  Transmission Date: 20190417
  Serious: Yes (Other)
  Sender: FDA-Public Use
  Company Number: IT-AMGEN-ITASP2018132527

PATIENT
  Age: 53 Year
  Sex: Female
  Weight: 80 kg

DRUGS (2)
  1. NPLATE [Suspect]
     Active Substance: ROMIPLOSTIM
     Indication: THROMBOCYTOPENIA
     Dosage: 5 MCG, QWK
     Route: 058
     Dates: start: 20160902, end: 20180904
  2. EUTIROX [Concomitant]
     Active Substance: LEVOTHYROXINE SODIUM
     Indication: HYPOTHYROIDISM
     Dosage: 50 MCG, UNK
     Route: 048

REACTIONS (3)
  - Lens disorder [Unknown]
  - Vitreous detachment [Unknown]
  - Cataract [Unknown]

NARRATIVE: CASE EVENT DATE: 20180904
